FAERS Safety Report 25931243 (Version 1)
Quarter: 2025Q4

REPORT INFORMATION
  Report Type: Spontaneous
  Country: US (occurrence: US)
  Receive Date: 20251016
  Receipt Date: 20251016
  Transmission Date: 20260117
  Serious: Yes (Other)
  Sender: ALEXION PHARMACEUTICALS
  Company Number: US-AstraZeneca-CH-00971074A

PATIENT
  Sex: Female

DRUGS (2)
  1. FASENRA [Suspect]
     Active Substance: BENRALIZUMAB
     Route: 065
  2. FASENRA [Suspect]
     Active Substance: BENRALIZUMAB

REACTIONS (7)
  - Lung neoplasm malignant [Unknown]
  - Brain fog [Unknown]
  - Illness [Unknown]
  - Alpha 1 foetoprotein abnormal [Unknown]
  - Blood product transfusion dependent [Unknown]
  - Treatment delayed [Unknown]
  - Inappropriate schedule of product administration [Unknown]
